FAERS Safety Report 15470145 (Version 2)
Quarter: 2018Q4

REPORT INFORMATION
  Report Type: Spontaneous
  Country: US (occurrence: US)
  Receive Date: 20181005
  Receipt Date: 20181031
  Transmission Date: 20190205
  Serious: No
  Sender: FDA-Public Use
  Company Number: US-SA-2018SA272838

PATIENT
  Sex: Female

DRUGS (1)
  1. LANTUS [Suspect]
     Active Substance: INSULIN GLARGINE
     Indication: DIABETES MELLITUS
     Dosage: 37 U, QD
     Route: 065

REACTIONS (3)
  - Product dose omission [Unknown]
  - Blood glucose increased [Unknown]
  - Device issue [Unknown]
